FAERS Safety Report 7305022-9 (Version None)
Quarter: 2011Q1

REPORT INFORMATION
  Report Type: 
  Country: None (occurrence: None)
  Receive Date: 20110222
  Receipt Date: 20110214
  Transmission Date: 20110831
  Serious: Yes (Other)
  Sender: FDA-Public Use
  Company Number: US-SANOFI-AVENTIS-2011SA006975

PATIENT
  Age: 56 Year
  Sex: Male
  Weight: 83.91 kg

DRUGS (7)
  1. LANTUS [Suspect]
     Indication: TYPE 2 DIABETES MELLITUS
     Dosage: DOSE:50 UNIT(S)
     Route: 058
  2. VERAPAMIL [Concomitant]
     Indication: BLOOD PRESSURE
     Dosage: BEGAN OVER 10 YEARS AGO
  3. HYDROCHLOROTHIAZIDE [Concomitant]
     Dosage: BEGAN OVER 10 YEARS AGO
  4. LOSARTAN POTASSIUM [Concomitant]
     Indication: BLOOD PRESSURE
     Dates: start: 20090101
  5. BUPROPION [Concomitant]
     Indication: DEPRESSION
     Dates: start: 20091001
  6. GABAPENTIN [Concomitant]
     Indication: PAIN
     Dates: start: 20091001
  7. ALL OTHER THERAPEUTIC PRODUCTS [Concomitant]

REACTIONS (1)
  - MULTIPLE SCLEROSIS [None]
